FAERS Safety Report 9627288 (Version 1)
Quarter: 2013Q4

REPORT INFORMATION
  Report Type: Not Available
  Country: US (occurrence: US)
  Receive Date: 20131016
  Receipt Date: 20131016
  Transmission Date: 20140711
  Serious: Yes (Other)
  Sender: FDA-Public Use
  Company Number: US-LUNDBECK-DKLU1085165

PATIENT
  Sex: Female

DRUGS (1)
  1. SABRIL (FOR ORAL SOLUTION) [Suspect]
     Indication: INFANTILE SPASMS
     Dates: start: 20120321

REACTIONS (7)
  - Convulsion [Unknown]
  - Syncope [Unknown]
  - White blood cell count increased [Unknown]
  - Screaming [Unknown]
  - Musculoskeletal stiffness [Unknown]
  - Anaemia [Unknown]
  - Constipation [Unknown]
